FAERS Safety Report 6366479-3 (Version None)
Quarter: 2009Q3

REPORT INFORMATION
  Report Type: 
  Country: None (occurrence: None)
  Receive Date: 20090915
  Receipt Date: 20090901
  Transmission Date: 20100115
  Serious: Yes (Death)
  Sender: FDA-Public Use
  Company Number: B0591810A

PATIENT
  Sex: 0

DRUGS (8)
  1. MELPHALAN (FORMULATION UNKNOWN) (GENERIC)  (MELPHALAN) [Suspect]
     Indication: STEM CELL TRANSPLANT
  2. FLUDARABINE PHOSPHATE [Suspect]
     Indication: STEM CELL TRANSPLANT
  3. CYTARABINE [Suspect]
     Indication: STEM CELL TRANSPLANT
  4. AMSACRINE (FORMULATION UNKNOWN) (AMSACRINE) [Concomitant]
     Indication: STEM CELL TRANSPLANT
  5. THIOTEPA [Suspect]
     Indication: STEM CELL TRANSPLANT
  6. TACROLIMUS [Suspect]
     Indication: STEM CELL TRANSPLANT
  7. MYCOPHENOLATE MOFETIL [Suspect]
     Indication: STEM CELL TRANSPLANT
  8. ANTITHYMOCYTE IG (FORMULATION UNKNOWN) (ANTITHYMOCYTE IG) [Suspect]
     Indication: STEM CELL TRANSPLANT

REACTIONS (1)
  - THROMBOTIC MICROANGIOPATHY [None]
